FAERS Safety Report 13201565 (Version 1)
Quarter: 2017Q1

REPORT INFORMATION
  Report Type: Spontaneous
  Country: US (occurrence: US)
  Receive Date: 20170208
  Receipt Date: 20170208
  Transmission Date: 20170428
  Serious: No
  Sender: FDA-Public Use
  Company Number: US-AMGEN-USASP2016068456

PATIENT

DRUGS (7)
  1. DEXAMETHASONE. [Concomitant]
     Active Substance: DEXAMETHASONE
     Dosage: UNK
  2. BENADRYL [Concomitant]
     Active Substance: DIPHENHYDRAMINE HYDROCHLORIDE
     Dosage: UNK
  3. ALOXI [Concomitant]
     Active Substance: PALONOSETRON HYDROCHLORIDE
     Dosage: UNK
  4. NEULASTA [Suspect]
     Active Substance: PEGFILGRASTIM
     Indication: PRODUCT USED FOR UNKNOWN INDICATION
     Dosage: UNK UNK, UNK
     Route: 065
     Dates: start: 201302
  5. RITUXAN [Concomitant]
     Active Substance: RITUXIMAB
     Dosage: UNK
  6. TREANDA [Concomitant]
     Active Substance: BENDAMUSTINE HYDROCHLORIDE
     Dosage: UNK
  7. VITAMIN B12 [Concomitant]
     Active Substance: CYANOCOBALAMIN
     Dosage: UNK
     Route: 060

REACTIONS (6)
  - Feeling abnormal [Unknown]
  - Pain in extremity [Unknown]
  - Cystitis interstitial [Unknown]
  - Gait disturbance [Unknown]
  - Neuropathy peripheral [Unknown]
  - Burning sensation [Unknown]
